FAERS Safety Report 5627800-4 (Version None)
Quarter: 2008Q1

REPORT INFORMATION
  Report Type: 
  Country: None (occurrence: None)
  Receive Date: 20080215
  Receipt Date: 20080206
  Transmission Date: 20080703
  Serious: Yes (Hospitalization)
  Sender: FDA-Public Use
  Company Number: B0508054A

PATIENT
  Age: 55 Year
  Sex: Female

DRUGS (8)
  1. AUGMENTIN '125' [Suspect]
     Dosage: 2TAB PER DAY
     Route: 048
     Dates: start: 20071124, end: 20071130
  2. ZANOCIN [Suspect]
     Route: 048
     Dates: start: 20071130, end: 20071201
  3. VASOCARDIN [Concomitant]
  4. LACIPIL [Concomitant]
  5. RHEFLUIN [Concomitant]
  6. ANOPYRIN [Concomitant]
  7. VENORUTON [Concomitant]
  8. TAFEN [Concomitant]

REACTIONS (7)
  - ANGIOEDEMA [None]
  - DYSPHAGIA [None]
  - DYSPNOEA [None]
  - LIP OEDEMA [None]
  - PERIORBITAL OEDEMA [None]
  - PRURITUS [None]
  - URTICARIA [None]
